FAERS Safety Report 7996586-0 (Version None)
Quarter: 2011Q4

REPORT INFORMATION
  Report Type: 
  Country: None (occurrence: None)
  Receive Date: 20111221
  Receipt Date: 20111114
  Transmission Date: 20120403
  Serious: Yes (Other)
  Sender: FDA-Public Use
  Company Number: US-BIOGENIDEC-2011BI038833

PATIENT
  Sex: Male

DRUGS (3)
  1. AVONEX [Suspect]
  2. AMPYRA [Concomitant]
     Indication: GAIT DISTURBANCE
     Dates: end: 20110901
  3. AVONEX [Suspect]
     Indication: MULTIPLE SCLEROSIS
     Route: 030
     Dates: start: 20080501, end: 20110901

REACTIONS (2)
  - CONVULSION [None]
  - BODY TEMPERATURE INCREASED [None]
